FAERS Safety Report 4592543-5 (Version None)
Quarter: 2005Q1

REPORT INFORMATION
  Report Type: 
  Country: None (occurrence: None)
  Receive Date: 20050222
  Receipt Date: 20050207
  Transmission Date: 20050727
  Serious: Yes (Hospitalization)
  Sender: FDA-Public Use
  Company Number: MED000028

PATIENT
  Age: 14 Month
  Sex: Female

DRUGS (4)
  1. 5% DEXTROSE 0.45% SODIUM CHLORIDE AND POTASSIUM CHLORIDE INJECTIONS IN [Suspect]
     Indication: COUGH
     Dosage: 50 ML, QH; INTRAVENOUS
     Route: 042
     Dates: start: 20050125, end: 20050126
  2. SOLU-MEDROL [Concomitant]
  3. CLAFORAN [Concomitant]
  4. SOLU-MEDROL [Concomitant]

REACTIONS (6)
  - BODY TEMPERATURE INCREASED [None]
  - COMPARTMENT SYNDROME [None]
  - HEART RATE INCREASED [None]
  - INFUSION SITE REACTION [None]
  - NECROSIS [None]
  - RESPIRATORY RATE INCREASED [None]
